FAERS Safety Report 7704848-7 (Version None)
Quarter: 2011Q3

REPORT INFORMATION
  Report Type: 
  Country: None (occurrence: None)
  Receive Date: 20110823
  Receipt Date: 20110818
  Transmission Date: 20111222
  Serious: Yes (Other)
  Sender: FDA-Public Use
  Company Number: US-PFIZER INC-2011191339

PATIENT
  Sex: Female
  Weight: 64 kg

DRUGS (2)
  1. CHANTIX [Suspect]
     Indication: SMOKING CESSATION THERAPY
     Dosage: 0.5 MG, 1X/DAY
     Dates: start: 20101101, end: 20110601
  2. CELEBREX [Interacting]
     Indication: ARTHRITIS
     Dosage: UNK
     Dates: end: 20110601

REACTIONS (3)
  - RASH GENERALISED [None]
  - HYPERSENSITIVITY [None]
  - AGITATION [None]
